FAERS Safety Report 10675758 (Version 3)
Quarter: 2015Q1

REPORT INFORMATION
  Report Type: Spontaneous
  Country: IT (occurrence: IT)
  Receive Date: 20141225
  Receipt Date: 20150215
  Transmission Date: 20150720
  Serious: Yes (Hospitalization)
  Sender: FDA-Public Use
  Company Number: IT-ROCHE-1513096

PATIENT
  Age: 45 Year
  Sex: Female
  Weight: 86 kg

DRUGS (2)
  1. HERCEPTIN [Suspect]
     Active Substance: TRASTUZUMAB
     Indication: INVASIVE DUCTAL BREAST CARCINOMA
     Route: 042
     Dates: start: 20140124, end: 20140331
  2. ZOPRAZIDE [Concomitant]

REACTIONS (2)
  - Cardiotoxicity [Unknown]
  - Asthmatic crisis [Unknown]

NARRATIVE: CASE EVENT DATE: 20140421
